FAERS Safety Report 9849873 (Version 2)
Quarter: 2014Q2

REPORT INFORMATION
  Report Type: Spontaneous
  Country: US (occurrence: US)
  Receive Date: 20140128
  Receipt Date: 20140602
  Transmission Date: 20141212
  Serious: Yes (Hospitalization, Other)
  Sender: FDA-Public Use
  Company Number: US-BAYER-2014-011005

PATIENT
  Age: 41 Year
  Sex: Female
  Weight: 63.49 kg

DRUGS (2)
  1. MIRENA [Suspect]
     Indication: CONTRACEPTION
     Dosage: 20 MCG/24HR, CONT
     Route: 015
     Dates: start: 200812, end: 20120924
  2. ADVIL [Concomitant]
     Indication: ANALGESIC THERAPY
     Dosage: UNK
     Dates: start: 200812, end: 201209

REACTIONS (8)
  - Uterine perforation [None]
  - Genital haemorrhage [None]
  - Amenorrhoea [None]
  - Emotional distress [None]
  - Abdominal pain [None]
  - Pelvic pain [None]
  - Injury [None]
  - Stress [None]
